FAERS Safety Report 4596904-X (Version None)
Quarter: 2005Q1

REPORT INFORMATION
  Report Type: 
  Country: None (occurrence: None)
  Receive Date: 20050228
  Receipt Date: 20050215
  Transmission Date: 20050727
  Serious: Yes (Hospitalization)
  Sender: FDA-Public Use
  Company Number: 2005UW02611

PATIENT
  Sex: Male

DRUGS (1)
  1. CRESTOR [Suspect]
     Dates: start: 20040701

REACTIONS (5)
  - AMNESIA [None]
  - ARTHRALGIA [None]
  - BACK PAIN [None]
  - HALLUCINATION [None]
  - PAIN IN EXTREMITY [None]
